FAERS Safety Report 5886612-7 (Version None)
Quarter: 2008Q3

REPORT INFORMATION
  Report Type: 
  Country: None (occurrence: None)
  Receive Date: 20080917
  Receipt Date: 20080905
  Transmission Date: 20090109
  Serious: Yes (Other)
  Sender: FDA-Public Use
  Company Number: PHHY2008AT19550

PATIENT
  Sex: Male
  Weight: 80 kg

DRUGS (2)
  1. GLEEVEC [Suspect]
     Indication: CHRONIC MYELOID LEUKAEMIA
     Dosage: 400 MG/DAILY
     Route: 048
     Dates: start: 20050401
  2. RINGER'S [Suspect]
     Dosage: 1000 ML, UNK
     Dates: start: 20080813

REACTIONS (7)
  - BLOOD UREA DECREASED [None]
  - HYPERTONIA [None]
  - MUSCLE SPASMS [None]
  - MUSCULAR WEAKNESS [None]
  - MYALGIA [None]
  - RHABDOMYOLYSIS [None]
  - TROPONIN INCREASED [None]
